FAERS Safety Report 7005258-0 (Version None)
Quarter: 2010Q3

REPORT INFORMATION
  Report Type: 
  Country: None (occurrence: None)
  Receive Date: 20100921
  Receipt Date: 20100908
  Transmission Date: 20110219
  Serious: Yes (Hospitalization)
  Sender: FDA-Public Use
  Company Number: PHHY2010JP60520

PATIENT
  Age: 48 Year
  Sex: Male

DRUGS (1)
  1. CYCLOSPORINE [Suspect]
     Indication: PUSTULAR PSORIASIS

REACTIONS (3)
  - CONCOMITANT DISEASE PROGRESSION [None]
  - PSORIASIS [None]
  - RENAL DISORDER [None]
